FAERS Safety Report 4804809-1 (Version None)
Quarter: 2005Q4

REPORT INFORMATION
  Report Type: 
  Country: None (occurrence: None)
  Receive Date: 20051017
  Receipt Date: 20051003
  Transmission Date: 20060501
  Serious: Yes (Other)
  Sender: FDA-Public Use
  Company Number: 2005136707

PATIENT
  Age: 75 Year
  Sex: Male

DRUGS (4)
  1. VIAGRA [Suspect]
     Indication: ILL-DEFINED DISORDER
  2. LEUPROLIDE ACETATE [Suspect]
     Indication: PROSTATE CANCER
     Dosage: 120 MCG (120 MCG, 1 IN 1 D), SUBCUTANEOUS
     Route: 058
     Dates: start: 20050819, end: 20050830
  3. OMEGA 3 (FISH OIL) [Concomitant]
  4. FIBERCON (POLYCARBOPHIL CALCIUM) [Concomitant]

REACTIONS (1)
  - IMPLANT EXPULSION [None]
